FAERS Safety Report 13397833 (Version 3)
Quarter: 2017Q2

REPORT INFORMATION
  Report Type: Report from Study
  Country: CA (occurrence: CA)
  Receive Date: 20170403
  Receipt Date: 20170626
  Transmission Date: 20170830
  Serious: Yes (Other)
  Sender: FDA-Public Use
  Company Number: CA-PFIZER INC-2017135519

PATIENT
  Age: 14 Day
  Sex: Male
  Weight: 1.23 kg

DRUGS (2)
  1. VANCOMYCIN HCL [Suspect]
     Active Substance: VANCOMYCIN HYDROCHLORIDE
     Indication: NECROTISING COLITIS
     Dosage: 21.1 MG/KG, UNK
     Route: 041
  2. VANCOMYCIN HCL [Suspect]
     Active Substance: VANCOMYCIN HYDROCHLORIDE
     Indication: STAPHYLOCOCCAL SEPSIS

REACTIONS (2)
  - Red man syndrome [Unknown]
  - Neonatal hypotension [Unknown]
